FAERS Safety Report 9363333 (Version 1)
Quarter: 2013Q2

REPORT INFORMATION
  Report Type: Spontaneous
  Country: US (occurrence: US)
  Receive Date: 20130624
  Receipt Date: 20130624
  Transmission Date: 20140414
  Serious: Yes (Other)
  Sender: FDA-Public Use
  Company Number: US-JNJFOC-20130518510

PATIENT
  Age: 75 Year
  Sex: Male

DRUGS (7)
  1. LEVAQUIN [Suspect]
     Indication: GASTROENTERITIS SALMONELLA
     Route: 048
     Dates: start: 2009
  2. CIPRO [Suspect]
     Indication: INFECTION
     Route: 065
  3. ZOLPIDEM [Concomitant]
     Indication: SLEEP DISORDER
     Route: 048
  4. TRAMADOL [Concomitant]
     Indication: PAIN
     Route: 065
  5. OMEPRAZOLE [Concomitant]
     Indication: GASTROOESOPHAGEAL REFLUX DISEASE
     Route: 048
  6. HYDROCODONE/ACETAMINOPHEN [Concomitant]
     Route: 048
  7. CITALOPRAM [Concomitant]
     Route: 048

REACTIONS (9)
  - Tendon injury [Unknown]
  - Tendon rupture [Recovering/Resolving]
  - Rotator cuff syndrome [Unknown]
  - Depression [Unknown]
  - Anxiety [Unknown]
  - Injury [Unknown]
  - Tendonitis [Unknown]
  - Tenosynovitis [Unknown]
  - Tenosynovitis [Unknown]
